FAERS Safety Report 5623844-7 (Version None)
Quarter: 2008Q1

REPORT INFORMATION
  Report Type: 
  Country: None (occurrence: None)
  Receive Date: 20080207
  Receipt Date: 20080128
  Transmission Date: 20080703
  Serious: Yes (Hospitalization)
  Sender: FDA-Public Use
  Company Number: 2008BI001868

PATIENT
  Age: 58 Year
  Sex: Female
  Weight: 65.7716 kg

DRUGS (1)
  1. AVONEX [Suspect]
     Indication: MULTIPLE SCLEROSIS
     Dosage: 30 UG QW IM
     Route: 030
     Dates: start: 20030827

REACTIONS (7)
  - CONTUSION [None]
  - EXOSTOSIS [None]
  - FALL [None]
  - MULTIPLE SCLEROSIS [None]
  - PAIN [None]
  - ROTATOR CUFF SYNDROME [None]
  - TOOTH FRACTURE [None]
